FAERS Safety Report 4345701-9 (Version None)
Quarter: 2004Q2

REPORT INFORMATION
  Report Type: 
  Country: None (occurrence: None)
  Receive Date: 20040421
  Receipt Date: 20040414
  Transmission Date: 20050107
  Serious: Yes (Hospitalization, Other)
  Sender: FDA-Public Use
  Company Number: ZONI001396

PATIENT
  Age: 1 Month
  Sex: Male

DRUGS (1)
  1. ZONEGRAN [Suspect]
     Indication: CONVULSION
     Dates: start: 20040101

REACTIONS (1)
  - BLOOD BILIRUBIN INCREASED [None]
